FAERS Safety Report 8781526 (Version 1)
Quarter: 2012Q4

REPORT INFORMATION
  Report Type: 
  Country: US (occurrence: US)
  Receive Date: 20120913
  Receipt Date: 20120913
  Transmission Date: 20130627
  Serious: No
  Sender: FDA-Public Use
  Company Number: US-VERTEX PHARMACEUTICAL INC.-AE-2012-007879

PATIENT
  Age: 55 Year
  Sex: Male
  Weight: 87.27 kg

DRUGS (6)
  1. INCIVEK [Suspect]
     Indication: HEPATITIS C
     Route: 048
     Dates: start: 20120127, end: 20120411
  2. RIBAVIRIN [Concomitant]
     Indication: HEPATITIS C
     Route: 048
     Dates: start: 20120127
  3. PEGASYS [Concomitant]
     Indication: HEPATITIS C
     Route: 058
     Dates: start: 20120127
  4. LOTREL [Concomitant]
     Indication: HYPERTENSION
     Route: 048
  5. BAYERS ASPIRIN [Concomitant]
     Route: 048
  6. MULTIVITAMIN [Concomitant]
     Indication: MEDICAL DIET
     Route: 048

REACTIONS (1)
  - Drug dose omission [Unknown]
